FAERS Safety Report 6387775-X (Version None)
Quarter: 2009Q4

REPORT INFORMATION
  Report Type: 
  Country: None (occurrence: None)
  Receive Date: 20091005
  Receipt Date: 20090929
  Transmission Date: 20100525
  Serious: Yes (Death)
  Sender: FDA-Public Use
  Company Number: IN-BRISTOL-MYERS SQUIBB COMPANY-14797302

PATIENT
  Age: 36 Year
  Sex: Female

DRUGS (1)
  1. SPRYCEL [Suspect]
     Route: 048
     Dates: start: 20081206, end: 20090819

REACTIONS (2)
  - FLUID RETENTION [None]
  - PNEUMONIA [None]
